FAERS Safety Report 19880427 (Version 1)
Quarter: 2021Q3

REPORT INFORMATION
  Report Type: Spontaneous
  Country: US (occurrence: US)
  Receive Date: 20210924
  Receipt Date: 20210924
  Transmission Date: 20211014
  Serious: Yes (Other)
  Sender: FDA-Public Use
  Company Number: US-ASTRAZENECA-2021A732694

PATIENT
  Sex: Male

DRUGS (3)
  1. SYMBICORT [Suspect]
     Active Substance: BUDESONIDE\FORMOTEROL FUMARATE DIHYDRATE
     Dosage: 80 UG, FREQUENCY UNKNOWN, 80/4.5 UNKNOWN
     Route: 055
  2. FLONASE [Concomitant]
     Active Substance: FLUTICASONE PROPIONATE
     Indication: TYMPANIC MEMBRANE PERFORATION
     Route: 065
  3. FLONASE [Concomitant]
     Active Substance: FLUTICASONE PROPIONATE
     Indication: DEAFNESS
     Route: 065

REACTIONS (5)
  - Ear discomfort [Unknown]
  - Tympanic membrane perforation [Unknown]
  - Hypoacusis [Unknown]
  - Excessive eye blinking [Unknown]
  - Off label use [Unknown]
